FAERS Safety Report 6618566-X (Version None)
Quarter: 2010Q1

REPORT INFORMATION
  Report Type: 
  Country: None (occurrence: None)
  Receive Date: 20100308
  Receipt Date: 20100226
  Transmission Date: 20100710
  Serious: Yes (Hospitalization, Other)
  Sender: FDA-Public Use
  Company Number: US-MERCK-1001USA03816

PATIENT
  Age: 44 Year
  Sex: Female

DRUGS (1)
  1. FOSAMAX [Suspect]
     Indication: OSTEOPOROSIS
     Route: 048

REACTIONS (14)
  - ADVERSE EVENT [None]
  - ANGIOPATHY [None]
  - BONE DISORDER [None]
  - BREAST CANCER [None]
  - DENTAL CARIES [None]
  - DEPRESSION [None]
  - EDENTULOUS [None]
  - EXOSTOSIS [None]
  - FRACTURE [None]
  - IMPAIRED HEALING [None]
  - NERVE INJURY [None]
  - ORAL TORUS [None]
  - OSTEONECROSIS [None]
  - UTERINE DISORDER [None]
